FAERS Safety Report 10483161 (Version 3)
Quarter: 2014Q4

REPORT INFORMATION
  Report Type: Spontaneous
  Country: IT (occurrence: IT)
  Receive Date: 20140930
  Receipt Date: 20141012
  Transmission Date: 20150528
  Serious: Yes (Hospitalization)
  Sender: FDA-Public Use
  Company Number: IT-JNJFOC-20140919598

PATIENT
  Age: 20 Year
  Sex: Male

DRUGS (9)
  1. ASPIRIN. [Suspect]
     Active Substance: ASPIRIN
     Indication: SUICIDE ATTEMPT
     Route: 065
     Dates: start: 20140815, end: 20140815
  2. VITAMIN B COMPLEX [Suspect]
     Active Substance: CYANOCOBALAMIN\DEXPANTHENOL\NIACINAMIDE\PYRIDOXINE HYDROCHLORIDE\RIBOFLAVIN 5^-PHOSPHATE SODIUM\THIAMINE HYDROCHLORIDE\VITAMIN B COMPLEX
     Indication: SUICIDE ATTEMPT
     Route: 065
     Dates: start: 20140815, end: 20140815
  3. INFLUMED [Suspect]
     Active Substance: ACETAMINOPHEN\CAFFEINE\CHLORPHENIRAMINE MALEATE\ISOPROPAMIDE IODIDE
     Indication: SUICIDE ATTEMPT
     Route: 065
     Dates: start: 20140815, end: 20140815
  4. TRANEX [Suspect]
     Active Substance: TRANEXAMIC ACID
     Indication: SUICIDE ATTEMPT
     Route: 065
     Dates: start: 20140815, end: 20140815
  5. ACECLOFENAC [Suspect]
     Active Substance: ACECLOFENAC
     Indication: SUICIDE ATTEMPT
     Route: 065
     Dates: start: 20140815, end: 20140815
  6. IBUPROFEN. [Suspect]
     Active Substance: IBUPROFEN
     Indication: SUICIDE ATTEMPT
     Route: 065
     Dates: start: 20140815, end: 20140815
  7. DELTACORTENE [Suspect]
     Active Substance: PREDNISONE
     Indication: SUICIDE ATTEMPT
     Route: 065
     Dates: start: 20140815, end: 20140815
  8. AERIUS [Suspect]
     Active Substance: DESLORATADINE
     Indication: SUICIDE ATTEMPT
     Route: 048
     Dates: start: 20140815, end: 20140815
  9. TACHIPIRINA [Suspect]
     Active Substance: ACETAMINOPHEN
     Indication: SUICIDE ATTEMPT
     Route: 048
     Dates: start: 20140815, end: 20140815

REACTIONS (1)
  - Suicide attempt [Recovered/Resolved]

NARRATIVE: CASE EVENT DATE: 20140815
